FAERS Safety Report 11724490 (Version 1)
Quarter: 2015Q4

REPORT INFORMATION
  Report Type: Spontaneous
  Country: US (occurrence: US)
  Receive Date: 20151111
  Receipt Date: 20151111
  Transmission Date: 20160304
  Serious: No
  Sender: FDA-Public Use
  Company Number: US-009507513-1511USA002446

PATIENT
  Sex: Female

DRUGS (1)
  1. NEXPLANON [Suspect]
     Active Substance: ETONOGESTREL
     Dosage: ONE ROD EVERY THREE YEARS
     Route: 030

REACTIONS (5)
  - Incorrect route of drug administration [Unknown]
  - Discomfort [Unknown]
  - Maternal exposure before pregnancy [Unknown]
  - Implant site scar [Unknown]
  - Tenderness [Unknown]
